FAERS Safety Report 9294781 (Version 1)
Quarter: 2013Q2

REPORT INFORMATION
  Report Type: Spontaneous
  Country: US (occurrence: US)
  Receive Date: 20130517
  Receipt Date: 20130517
  Transmission Date: 20140414
  Serious: No
  Sender: FDA-Public Use
  Company Number: US-PFIZER INC-2013151422

PATIENT
  Age: 46 Year
  Sex: Female
  Weight: 63.49 kg

DRUGS (2)
  1. ZOLOFT [Suspect]
     Indication: MOOD SWINGS
     Dosage: 25 MG, 2X/DAY
  2. DEPO-PROVERA [Concomitant]
     Indication: CONTRACEPTION
     Dosage: UNK, EVERY 3 MONTHS

REACTIONS (1)
  - Somnolence [Recovered/Resolved]
